FAERS Safety Report 7213134-3 (Version None)
Quarter: 2011Q1

REPORT INFORMATION
  Report Type: 
  Country: None (occurrence: None)
  Receive Date: 20110106
  Receipt Date: 20101221
  Transmission Date: 20110831
  Serious: No
  Sender: FDA-Public Use
  Company Number: US-B.I. PHARMACEUTICALS,INC./RIDGEFIELD-2010-BP-15320BP

PATIENT
  Sex: Female

DRUGS (3)
  1. ZANTAC 75 [Suspect]
     Dosage: 300 MG
  2. PRILOSEC [Concomitant]
  3. ZANTAC 75 [Suspect]
     Dosage: 225 MG

REACTIONS (1)
  - DRUG INEFFECTIVE [None]
